FAERS Safety Report 24323536 (Version 1)
Quarter: 2024Q3

REPORT INFORMATION
  Report Type: Spontaneous
  Country: US (occurrence: None)
  Receive Date: 20240914
  Receipt Date: 20240914
  Transmission Date: 20241016
  Serious: Yes (Disabling)
  Sender: Public
  Company Number: None

PATIENT
  Age: 62 Year
  Sex: Female
  Weight: 48.15 kg

DRUGS (1)
  1. SKYRIZI [Suspect]
     Active Substance: RISANKIZUMAB-RZAA
     Indication: Crohn^s disease
     Dosage: OTHER QUANTITY : 1 INJECTION(S);?OTHER FREQUENCY : 8 WEEKS;?
     Route: 058
     Dates: start: 20231105, end: 20240729

REACTIONS (3)
  - Vertigo [None]
  - Fluid retention [None]
  - Weight increased [None]

NARRATIVE: CASE EVENT DATE: 20240418
